FAERS Safety Report 16358975 (Version 3)
Quarter: 2019Q3

REPORT INFORMATION
  Report Type: Spontaneous
  Country: US (occurrence: US)
  Receive Date: 20190527
  Receipt Date: 20190711
  Transmission Date: 20191004
  Serious: No
  Sender: FDA-Public Use
  Company Number: US-SA-2019SA136986

PATIENT
  Age: 45 Year
  Sex: Female

DRUGS (1)
  1. KEVZARA [Suspect]
     Active Substance: SARILUMAB
     Indication: PRODUCT USED FOR UNKNOWN INDICATION
     Dosage: 200 MG, QOW
     Route: 058
     Dates: start: 201904

REACTIONS (4)
  - Abdominal pain upper [Unknown]
  - Drug ineffective [Unknown]
  - Malaise [Not Recovered/Not Resolved]
  - Infection [Unknown]
